FAERS Safety Report 5728078-3 (Version None)
Quarter: 2008Q2

REPORT INFORMATION
  Report Type: 
  Country: None (occurrence: None)
  Receive Date: 20080505
  Receipt Date: 20080505
  Transmission Date: 20081010
  Serious: Yes (Hospitalization, Other)
  Sender: FDA-Public Use
  Company Number: DE-ABBOTT-08P-062-0448398-00

PATIENT
  Age: 14 Year
  Sex: Female

DRUGS (10)
  1. ACYCLOVIR [Suspect]
     Indication: GRAFT VERSUS HOST DISEASE
     Dosage: NOT REPORTED
  2. ACYCLOVIR [Suspect]
     Indication: PROPHYLAXIS
  3. BUSULFAN [Concomitant]
     Indication: STEM CELL TRANSPLANT
     Dosage: NOT REPORTED
  4. CYCLOSPORINE [Concomitant]
     Indication: GRAFT VERSUS HOST DISEASE
     Dosage: NOT REPORTED
  5. CYCLOSPORINE [Concomitant]
     Indication: PROPHYLAXIS
  6. ANTIBACTERIAL PROPHYLAXIS [Concomitant]
     Indication: GRAFT VERSUS HOST DISEASE
     Dosage: NOT REPORTED
  7. ANTIBACTERIAL PROPHYLAXIS [Concomitant]
     Indication: PROPHYLAXIS
  8. ANTIFUNGAL PROPHYLAXIS [Concomitant]
     Indication: GRAFT VERSUS HOST DISEASE
     Dosage: NOT REPORTED
  9. ANTIFUNGAL PROPHYLAXIS [Concomitant]
     Indication: PROPHYLAXIS
  10. ETOPOSIDE [Concomitant]
     Indication: STEM CELL TRANSPLANT
     Dosage: NOT REPORTED

REACTIONS (2)
  - DRUG TOXICITY [None]
  - GRAFT VERSUS HOST DISEASE [None]
